FAERS Safety Report 5270457-5 (Version None)
Quarter: 2007Q1

REPORT INFORMATION
  Report Type: 
  Country: None (occurrence: None)
  Receive Date: 20070315
  Receipt Date: 20070302
  Transmission Date: 20070707
  Serious: Yes (Hospitalization)
  Sender: FDA-Public Use
  Company Number: MEDI-0005440

PATIENT
  Age: 65 Year
  Sex: Male

DRUGS (22)
  1. ETHYOL [Suspect]
     Indication: PROPHYLAXIS
     Dosage: 500 MG, 5 IN 5, SUBCUTANEOUS
     Route: 058
     Dates: start: 20070122, end: 20070130
  2. DIOVAN [Concomitant]
  3. RADIATION THERAPY [Concomitant]
  4. CARBOPLATIN [Concomitant]
  5. TAXOL [Concomitant]
  6. ALPRAZOLAM [Concomitant]
  7. CIMETIDINE [Concomitant]
  8. DEXAMETHASONE SODIUM PHOSPHATE [Concomitant]
  9. DIPHENHYDRAMINE HCL [Concomitant]
  10. LIDOCAINE-PRILOCAINE (LIDOCAINE, PRILOCAINE) [Concomitant]
  11. LORAZEPAM [Concomitant]
  12. PALONOSETRON HCL (PALONOSETRON HYDROCHLORIDE) [Concomitant]
  13. ADVAIR DISKUS (FLUTICASONE PROPIONATE, SALMETEROL XINAFOATE) [Concomitant]
  14. EC ASPIRIN (ACETYLSALICYLIC ACID) [Concomitant]
  15. ALBUTEROL SULFATE [Concomitant]
  16. CENTRUM SILVER (ASCORBIC ACID, TOCOPHERYL ACETATE, RETINOL, ZINC, CALC [Concomitant]
  17. FUROSEMIDE [Concomitant]
  18. HUMULIN (INSULIN HUMAN) [Concomitant]
  19. HUMULIN R [Concomitant]
  20. LOPID [Concomitant]
  21. SINGULAIR [Concomitant]
  22. SPIRIVA [Concomitant]

REACTIONS (12)
  - BLOOD CREATINE INCREASED [None]
  - BLOOD GLUCOSE INCREASED [None]
  - CHEST DISCOMFORT [None]
  - CHILLS [None]
  - HEART RATE INCREASED [None]
  - HYPOTENSION [None]
  - INJECTION SITE ERYTHEMA [None]
  - PYREXIA [None]
  - RESPIRATORY FAILURE [None]
  - SLEEP APNOEA SYNDROME [None]
  - URINE OUTPUT DECREASED [None]
  - WHITE BLOOD CELL COUNT DECREASED [None]
